FAERS Safety Report 4607816-7 (Version None)
Quarter: 2005Q1

REPORT INFORMATION
  Report Type: 
  Country: None (occurrence: None)
  Receive Date: 20050314
  Receipt Date: 20041216
  Transmission Date: 20050727
  Serious: Yes (Hospitalization)
  Sender: FDA-Public Use
  Company Number: 2004/02142

PATIENT
  Age: 27 Year
  Sex: Female
  Weight: 56 kg

DRUGS (1)
  1. SONRIDOR [Suspect]
     Indication: HEADACHE
     Dates: start: 20041127, end: 20041127

REACTIONS (4)
  - DRUG HYPERSENSITIVITY [None]
  - PAIN [None]
  - PANCREATITIS [None]
  - VOMITING [None]
